FAERS Safety Report 9225684 (Version 1)
Quarter: 2013Q2

REPORT INFORMATION
  Report Type: Spontaneous
  Country: US (occurrence: US)
  Receive Date: 20130411
  Receipt Date: 20130411
  Transmission Date: 20140414
  Serious: Yes (Hospitalization)
  Sender: FDA-Public Use
  Company Number: US-ELI_LILLY_AND_COMPANY-US201304001343

PATIENT
  Sex: Male

DRUGS (6)
  1. HUMALOG LISPRO [Suspect]
     Indication: TYPE 2 DIABETES MELLITUS
     Dosage: UNK UNK, PRN
  2. GLUCOTROL [Concomitant]
     Dosage: UNK, UNKNOWN
  3. PROAIR HFA [Concomitant]
     Dosage: UNK, UNKNOWN
  4. ADVAIR [Concomitant]
     Dosage: UNK, UNKNOWN
  5. ALBUTEROL SULFATE W/IPRATROPIUM BROMIDE [Concomitant]
     Dosage: UNK, UNKNOWN
  6. VICODIN [Concomitant]
     Dosage: UNK, UNKNOWN

REACTIONS (4)
  - Respiratory tract infection [Unknown]
  - Blood glucose increased [Unknown]
  - Medication error [Unknown]
  - Drug interaction [Unknown]
